FAERS Safety Report 6534930-1 (Version None)
Quarter: 2010Q1

REPORT INFORMATION
  Report Type: 
  Country: None (occurrence: None)
  Receive Date: 20100112
  Receipt Date: 20100104
  Transmission Date: 20100710
  Serious: Yes (Death, Life-Threatening)
  Sender: FDA-Public Use
  Company Number: FR-ABBOTT-10P-056-0617564-00

PATIENT
  Age: 87 Year
  Sex: Female

DRUGS (3)
  1. DEPAKENE [Suspect]
     Indication: EPILEPSY
     Route: 048
  2. SEROPLEX [Concomitant]
     Indication: DRUG USE FOR UNKNOWN INDICATION
     Dates: end: 20090423
  3. APROVEL [Concomitant]
     Indication: DRUG USE FOR UNKNOWN INDICATION
     Dates: end: 20090423

REACTIONS (10)
  - COMA SCALE ABNORMAL [None]
  - CREPITATIONS [None]
  - DYSPNOEA [None]
  - EPILEPSY [None]
  - LEUKOCYTOSIS [None]
  - LUNG ABSCESS [None]
  - LUNG INFECTION [None]
  - PNEUMONIA ASPIRATION [None]
  - UNDERDOSE [None]
  - VOMITING [None]
